FAERS Safety Report 25347018 (Version 1)
Quarter: 2025Q2

REPORT INFORMATION
  Report Type: Spontaneous
  Country: TW (occurrence: TW)
  Receive Date: 20250522
  Receipt Date: 20250522
  Transmission Date: 20250717
  Serious: Yes (Other)
  Sender: MYLAN
  Company Number: TW-MYLANLABS-2025M1043499

PATIENT
  Age: 61 Year
  Sex: Female
  Weight: 50 kg

DRUGS (12)
  1. DOXAZOSIN MESYLATE [Suspect]
     Active Substance: DOXAZOSIN MESYLATE
     Indication: Hypertension
     Dosage: 4 MILLIGRAM, QD
     Dates: start: 20250218, end: 20250318
  2. LIPITOR [Suspect]
     Active Substance: ATORVASTATIN CALCIUM
     Indication: Hyperlipidaemia
     Dosage: 20 MILLIGRAM, QD
     Dates: start: 20250218, end: 20250318
  3. NORVASC [Suspect]
     Active Substance: AMLODIPINE BESYLATE
     Indication: Hypertension
     Dosage: 5 MILLIGRAM, QD
     Dates: start: 20250218, end: 20250318
  4. CRESEMBA [Suspect]
     Active Substance: ISAVUCONAZONIUM SULFATE
     Indication: Bronchopulmonary aspergillosis
     Dosage: 200 MILLIGRAM, QD
     Dates: start: 20250218, end: 20250225
  5. VORICONAZOLE [Suspect]
     Active Substance: VORICONAZOLE
     Indication: Antifungal treatment
  6. Biso [Concomitant]
     Indication: Hypertension
     Dosage: 5 MILLIGRAM, QD
     Dates: start: 20250218, end: 20250318
  7. NEXIUM [Concomitant]
     Active Substance: ESOMEPRAZOLE MAGNESIUM
     Indication: Gastrooesophageal reflux disease
     Dosage: 40 MILLIGRAM, QD
     Dates: start: 20250218, end: 20250318
  8. FUROSEMIDE [Concomitant]
     Active Substance: FUROSEMIDE
     Indication: Oedema
     Dosage: 80 MILLIGRAM, BID
     Dates: start: 20250218, end: 20250318
  9. AMARYL [Concomitant]
     Active Substance: GLIMEPIRIDE
     Indication: Type 2 diabetes mellitus
     Dosage: 2 MILLIGRAM, BID
     Dates: start: 20250218, end: 20250318
  10. LINAGLIPTIN [Concomitant]
     Active Substance: LINAGLIPTIN
     Indication: Type 2 diabetes mellitus
     Dosage: 5 MILLIGRAM, QD
     Dates: start: 20250218, end: 20250318
  11. Fylin retard [Concomitant]
     Indication: Peripheral vascular disorder
     Dosage: 400 MILLIGRAM, QD
     Dates: start: 20250218, end: 20250318
  12. TAMSULOSIN HYDROCHLORIDE [Concomitant]
     Active Substance: TAMSULOSIN HYDROCHLORIDE
     Indication: Dysuria
     Dosage: 0.2 MILLIGRAM, QD
     Dates: start: 20250218, end: 20250318

REACTIONS (2)
  - Rash [Recovered/Resolved]
  - Vision blurred [Recovered/Resolved]

NARRATIVE: CASE EVENT DATE: 20250218
